FAERS Safety Report 25738004 (Version 1)
Quarter: 2025Q3

REPORT INFORMATION
  Report Type: Spontaneous
  Country: TR (occurrence: None)
  Receive Date: 20250829
  Receipt Date: 20250829
  Transmission Date: 20251020
  Serious: Yes (Hospitalization)
  Sender: UMEDICA LABS
  Company Number: TR-Umedica-000684

PATIENT
  Age: 56 Year
  Sex: Male

DRUGS (2)
  1. TADALAFIL [Interacting]
     Active Substance: TADALAFIL
     Indication: Erectile dysfunction
     Route: 048
  2. CHLORPROMAZINE [Interacting]
     Active Substance: CHLORPROMAZINE
     Indication: Hiccups
     Route: 048

REACTIONS (3)
  - Priapism [Recovered/Resolved]
  - Prescription drug used without a prescription [Unknown]
  - Drug interaction [Unknown]
